FAERS Safety Report 24689764 (Version 1)
Quarter: 2024Q4

REPORT INFORMATION
  Report Type: Spontaneous
  Country: US (occurrence: US)
  Receive Date: 20241203
  Receipt Date: 20241203
  Transmission Date: 20250114
  Serious: Yes (Other)
  Sender: AUROBINDO
  Company Number: US-AUROBINDO-AUR-APL-2024-057808

PATIENT
  Age: 37 Year
  Sex: Female

DRUGS (6)
  1. NIFEDIPINE [Suspect]
     Active Substance: NIFEDIPINE
     Indication: Pre-eclampsia
     Dosage: 60 MILLIGRAM, TWO TIMES A DAY ( 60MG TWICE DAILY FOR 10 DAYS)
     Route: 048
  2. NIFEDIPINE [Suspect]
     Active Substance: NIFEDIPINE
     Indication: Gestational hypertension
  3. MAGNESIUM SULFATE [Suspect]
     Active Substance: MAGNESIUM SULFATE
     Indication: Pre-eclampsia
     Dosage: 6 GRAM
     Route: 040
  4. MAGNESIUM SULFATE [Suspect]
     Active Substance: MAGNESIUM SULFATE
     Indication: Gestational hypertension
     Dosage: UNK ( 20G/500ML AT 25 ML/HR FOR 2 DAYS)
     Route: 042
  5. LABETALOL [Suspect]
     Active Substance: LABETALOL
     Indication: Pre-eclampsia
     Dosage: 20 MILLIGRAM
     Route: 042
  6. LABETALOL [Suspect]
     Active Substance: LABETALOL
     Indication: Gestational hypertension
     Dosage: 200 MILLIGRAM, TWO TIMES A DAY (FOR 7 DAYS)
     Route: 048

REACTIONS (2)
  - Drug ineffective [Unknown]
  - Exposure during pregnancy [Unknown]
